FAERS Safety Report 7264997-7 (Version None)
Quarter: 2011Q1

REPORT INFORMATION
  Report Type: 
  Country: None (occurrence: None)
  Receive Date: 20110131
  Receipt Date: 20101217
  Transmission Date: 20110831
  Serious: Yes (Other)
  Sender: FDA-Public Use
  Company Number: US-BAYER-201033583NA

PATIENT
  Sex: Female
  Weight: 74.83 kg

DRUGS (6)
  1. LORTAB [Concomitant]
     Indication: PAIN MANAGEMENT
  2. OCELLA [Suspect]
     Indication: ACNE
  3. NEXIUM [Concomitant]
  4. YASMIN [Suspect]
     Indication: ACNE
  5. YAZ [Suspect]
     Indication: ACNE
  6. UNCODEABLE ^UNCLASSIFIABLE^ [Concomitant]

REACTIONS (4)
  - INJURY [None]
  - CHOLECYSTITIS CHRONIC [None]
  - CHOLELITHIASIS [None]
  - ABDOMINAL PAIN UPPER [None]
